FAERS Safety Report 5165034-0 (Version None)
Quarter: 2006Q4

REPORT INFORMATION
  Report Type: 
  Country: None (occurrence: None)
  Receive Date: 20061124
  Receipt Date: 20061114
  Transmission Date: 20070319
  Serious: Yes (Hospitalization, Other)
  Sender: FDA-Public Use
  Company Number: 2006127503

PATIENT
  Age: 45 Year
  Sex: Male
  Weight: 80 kg

DRUGS (5)
  1. CABERGOLINE [Suspect]
     Indication: PARKINSON'S DISEASE
     Dosage: 6 MG (1 D); ORAL
     Route: 048
     Dates: start: 19970101, end: 20060929
  2. PERGOLIDE MESYLATE [Suspect]
     Indication: PARKINSON'S DISEASE
     Dosage: 3 MG (1 MG, 3 IN 1 D); ORAL
     Route: 048
     Dates: start: 20010101, end: 20060929
  3. AMANTADINE HCL [Concomitant]
  4. SELEGILINE HCL [Concomitant]
  5. MADOPAR (BENSERAZIDE HYDROCHLORIDE, LEVODOPA) [Concomitant]

REACTIONS (5)
  - AORTIC VALVE INCOMPETENCE [None]
  - AORTIC VALVE SCLEROSIS [None]
  - PULMONARY HYPERTENSION [None]
  - TRICUSPID VALVE INCOMPETENCE [None]
  - VENTRICULAR HYPERTROPHY [None]
